FAERS Safety Report 8044133-X (Version None)
Quarter: 2012Q1

REPORT INFORMATION
  Report Type: 
  Country: None (occurrence: None)
  Receive Date: 20120113
  Receipt Date: 20120109
  Transmission Date: 20120608
  Serious: Yes (Life-Threatening, Other)
  Sender: FDA-Public Use
  Company Number: PHHY2011IE107553

PATIENT
  Sex: Male
  Weight: 70 kg

DRUGS (21)
  1. TOBI [Suspect]
     Indication: PSEUDOMONAS INFECTION
     Dosage: 300 MG, BID
     Dates: start: 20110906, end: 20111201
  2. MYFORTIC [Concomitant]
     Dosage: 180 MG, BID
  3. PREDNISOLONE [Concomitant]
  4. SEPTIN [Concomitant]
  5. FOLIC ACID [Concomitant]
  6. STERIMAR [Concomitant]
  7. MAGNESIUM [Concomitant]
  8. SYMBICORT [Concomitant]
  9. LANSOPRAZOLE [Concomitant]
  10. NYSTATIN [Concomitant]
  11. CHLORHEXIDINE GLUCONATE [Concomitant]
  12. FUROSEMIDE [Concomitant]
  13. CALCIUM CARBONATE [Concomitant]
  14. AZITHROMYCIN [Concomitant]
  15. FUNGIZONE [Concomitant]
  16. ATORVASTATIN [Concomitant]
  17. NEORAL [Concomitant]
     Dosage: 150 MG, BID
  18. IMMUNOSUPPRESSANTS [Concomitant]
  19. VITAMIN D [Concomitant]
  20. ALFACALCIDOL [Concomitant]
  21. ALENDRONATE SODIUM [Concomitant]

REACTIONS (5)
  - BLOOD CREATININE [None]
  - OEDEMA [None]
  - RENAL IMPAIRMENT [None]
  - RASH [None]
  - DEHYDRATION [None]
